FAERS Safety Report 8789514 (Version 1)
Quarter: 2012Q4

REPORT INFORMATION
  Report Type: Spontaneous
  Country: US (occurrence: None)
  Receive Date: 20120906
  Receipt Date: 20120906
  Transmission Date: 20130627
  Serious: Yes (Death, Congenital Anomaly)
  Sender: FDA-Public Use
  Company Number: ACET20120013

PATIENT

DRUGS (2)
  1. Q-PAP TABLETS 325MG (PARACETAMOL) (TABLETS) [Suspect]
     Indication: MATERNAL DRUGS AFFECTING FOETUS
  2. TYLENOL 3 [Suspect]
     Indication: MATERNAL DRUGS AFFECTING FOETUS

REACTIONS (7)
  - Foetal death [None]
  - Hydrops foetalis [None]
  - Cerebral ventricle dilatation [None]
  - Brain injury [None]
  - Intraventricular haemorrhage [None]
  - Periventricular leukomalacia [None]
  - Maternal drugs affecting foetus [None]
